FAERS Safety Report 25827504 (Version 1)
Quarter: 2025Q3

REPORT INFORMATION
  Report Type: Spontaneous
  Country: US (occurrence: None)
  Receive Date: 20250920
  Receipt Date: 20250920
  Transmission Date: 20251021
  Serious: No
  Sender: Harrow Health
  Company Number: US-HARROW-HAR-2025-US-00504

PATIENT
  Age: 93 Year
  Sex: Female

DRUGS (4)
  1. VEVYE [Suspect]
     Active Substance: CYCLOSPORINE
     Route: 047
     Dates: start: 20250708, end: 20250709
  2. LOSARTAN [Concomitant]
     Active Substance: LOSARTAN
  3. OXYBUTYNIN [Concomitant]
     Active Substance: OXYBUTYNIN
  4. ATORVASTATIN [Concomitant]
     Active Substance: ATORVASTATIN

REACTIONS (2)
  - Dizziness [Unknown]
  - Vomiting [Unknown]

NARRATIVE: CASE EVENT DATE: 20250709
